FAERS Safety Report 9559850 (Version 1)
Quarter: 2013Q3

REPORT INFORMATION
  Report Type: Spontaneous
  Country: US (occurrence: None)
  Receive Date: 20130906
  Receipt Date: 20130906
  Transmission Date: 20140515
  Serious: Yes (Hospitalization)
  Sender: FDA-Public Use
  Company Number: 163-POMAL-13073720

PATIENT
  Age: 54 Year
  Sex: Female

DRUGS (1)
  1. POMALYST [Suspect]
     Indication: PLASMA CELL MYELOMA
     Dates: start: 20130628

REACTIONS (1)
  - Thrombosis in device [None]
